FAERS Safety Report 18101384 (Version 2)
Quarter: 2020Q3

REPORT INFORMATION
  Report Type: Spontaneous
  Country: US (occurrence: US)
  Receive Date: 20200801
  Receipt Date: 20200824
  Transmission Date: 20201103
  Serious: No
  Sender: FDA-Public Use
  Company Number: US-SA-2020SA196025

PATIENT

DRUGS (1)
  1. CAPRELSA [Suspect]
     Active Substance: VANDETANIB
     Indication: THYROID CANCER
     Dosage: 200 MG, QD
     Route: 048
     Dates: start: 20190717

REACTIONS (5)
  - Thinking abnormal [Unknown]
  - Gait inability [Unknown]
  - Renal disorder [Unknown]
  - Peripheral swelling [Unknown]
  - Intentional dose omission [Unknown]
